FAERS Safety Report 7463678-4 (Version None)
Quarter: 2011Q2

REPORT INFORMATION
  Report Type: 
  Country: None (occurrence: None)
  Receive Date: 20110506
  Receipt Date: 20110425
  Transmission Date: 20111010
  Serious: No
  Sender: FDA-Public Use
  Company Number: B0716028A

PATIENT

DRUGS (2)
  1. RELENZA [Suspect]
     Indication: INFLUENZA
     Route: 063
     Dates: start: 20110425
  2. CALONAL [Concomitant]
     Dosage: 900MG PER DAY
     Route: 063
     Dates: start: 20110425

REACTIONS (1)
  - DRUG EXPOSURE VIA BREAST MILK [None]
